FAERS Safety Report 5307784-9 (Version None)
Quarter: 2007Q2

REPORT INFORMATION
  Report Type: 
  Country: None (occurrence: None)
  Receive Date: 20070418
  Receipt Date: 20070403
  Transmission Date: 20071010
  Serious: Yes (Death, Hospitalization)
  Sender: FDA-Public Use
  Company Number: 2007S1001632

PATIENT
  Age: 50 Year
  Sex: Male

DRUGS (9)
  1. DIAZEPAM [Suspect]
     Dosage: ORAL
     Route: 048
  2. LEXAPRO [Suspect]
     Dosage: ORAL
     Route: 048
     Dates: start: 20041122
  3. NAPROXEN [Suspect]
     Dosage: ORAL
     Route: 048
  4. RHINOCORT [Suspect]
     Dosage: NASAL
     Route: 045
  5. PAXIL [Suspect]
     Dosage: ORAL
     Route: 048
  6. RISPERDAL [Suspect]
     Dosage: ORAL
     Route: 048
  7. PAXIL CR [Suspect]
     Dosage: ORAL
     Route: 048
  8. BUSPIRONE HCL [Suspect]
     Dosage: ORAL
     Route: 048
  9. GABAPENTIN [Suspect]
     Dosage: ORAL
     Route: 048
     Dates: start: 20041201

REACTIONS (15)
  - AGITATION [None]
  - ANXIETY [None]
  - BLOOD URINE PRESENT [None]
  - CHEST PAIN [None]
  - COMPLETED SUICIDE [None]
  - CYSTITIS [None]
  - HEADACHE [None]
  - HYPOAESTHESIA [None]
  - INSOMNIA [None]
  - NECK PAIN [None]
  - NERVOUSNESS [None]
  - POST-TRAUMATIC STRESS DISORDER [None]
  - RESTLESSNESS [None]
  - ROAD TRAFFIC ACCIDENT [None]
  - SUICIDAL IDEATION [None]
